FAERS Safety Report 7761794-0 (Version None)
Quarter: 2011Q3

REPORT INFORMATION
  Report Type: 
  Country: None (occurrence: None)
  Receive Date: 20110920
  Receipt Date: 20110914
  Transmission Date: 20111222
  Serious: Yes (Other)
  Sender: FDA-Public Use
  Company Number: PHHY2011JP81869

PATIENT
  Age: 80 Year
  Sex: Male

DRUGS (2)
  1. ACETAMINOPHEN [Suspect]
     Dosage: UNK UKN, UNK
     Route: 054
  2. DICLOFENAC SODIUM [Suspect]
     Dosage: UNK UKN, UNK
     Route: 054

REACTIONS (1)
  - SHOCK [None]
